FAERS Safety Report 23579500 (Version 1)
Quarter: 2024Q1

REPORT INFORMATION
  Report Type: Spontaneous
  Country: US (occurrence: US)
  Receive Date: 20240229
  Receipt Date: 20240229
  Transmission Date: 20240410
  Serious: Yes (Death, Life-Threatening, Hospitalization, Other)
  Sender: FDA-Public Use
  Company Number: US-SUN PHARMACEUTICAL INDUSTRIES LTD-2024R1-433237

PATIENT
  Age: 39 Year
  Sex: Male

DRUGS (3)
  1. OCTREOTIDE [Suspect]
     Active Substance: OCTREOTIDE\OCTREOTIDE ACETATE
     Indication: Gastrointestinal haemorrhage
     Dosage: UNK
     Route: 065
  2. PANTOPRAZOLE [Suspect]
     Active Substance: PANTOPRAZOLE
     Indication: Gastrointestinal haemorrhage
     Dosage: UNK
     Route: 065
  3. CEFTRIAXONE [Suspect]
     Active Substance: CEFTRIAXONE\CEFTRIAXONE SODIUM
     Indication: Gastrointestinal haemorrhage
     Dosage: UNK
     Route: 042

REACTIONS (2)
  - Therapy non-responder [Fatal]
  - Condition aggravated [Unknown]
